FAERS Safety Report 14178097 (Version 2)
Quarter: 2018Q1

REPORT INFORMATION
  Report Type: Spontaneous
  Country: JP (occurrence: JP)
  Receive Date: 20171110
  Receipt Date: 20180226
  Transmission Date: 20180508
  Serious: Yes (Other)
  Sender: FDA-Public Use
  Company Number: JP-BAYER-2017-209854

PATIENT
  Age: 45 Year
  Sex: Female

DRUGS (4)
  1. YAZ [Suspect]
     Active Substance: DROSPIRENONE\ETHINYL ESTRADIOL
     Indication: DYSMENORRHOEA
     Dosage: UNK, QD
     Route: 048
     Dates: start: 20171211
  2. LOXONIN [Concomitant]
     Active Substance: LOXOPROFEN SODIUM
  3. KAMISHOUYOUSAN [Concomitant]
  4. YAZ [Suspect]
     Active Substance: DROSPIRENONE\ETHINYL ESTRADIOL
     Indication: DYSMENORRHOEA
     Dosage: UNK, QD
     Route: 048
     Dates: start: 20170908

REACTIONS (2)
  - Sudden hearing loss [Recovered/Resolved]
  - Tinnitus [Recovered/Resolved]

NARRATIVE: CASE EVENT DATE: 20171027
